FAERS Safety Report 4367585-5 (Version None)
Quarter: 2004Q2

REPORT INFORMATION
  Report Type: 
  Country: None (occurrence: None)
  Receive Date: 20040526
  Receipt Date: 20031114
  Transmission Date: 20050107
  Serious: No
  Sender: FDA-Public Use
  Company Number: 2004US002092

PATIENT

DRUGS (1)
  1. ALOXI [Suspect]
     Indication: PROPHYLAXIS OF NAUSEA AND VOMITING
     Dosage: 0.25 MG, SINGLE, ORAL
     Route: 048
     Dates: start: 20031101, end: 20031101

REACTIONS (1)
  - HEADACHE [None]
